FAERS Safety Report 5636358-5 (Version None)
Quarter: 2008Q1

REPORT INFORMATION
  Report Type: 
  Country: None (occurrence: None)
  Receive Date: 20080225
  Receipt Date: 20080211
  Transmission Date: 20080703
  Serious: Yes (Other)
  Sender: FDA-Public Use
  Company Number: FR-AMGEN-US256382

PATIENT
  Sex: Female
  Weight: 57 kg

DRUGS (8)
  1. ENBREL [Suspect]
     Indication: PSORIATIC ARTHROPATHY
     Route: 058
     Dates: start: 20060926
  2. ENBREL [Suspect]
     Indication: PSORIASIS
  3. MOPRAL [Concomitant]
     Route: 048
     Dates: start: 19940101
  4. STILNOX [Concomitant]
     Indication: INSOMNIA
     Route: 048
     Dates: start: 19950101
  5. UN-ALFA [Concomitant]
     Indication: MINERAL SUPPLEMENTATION
     Route: 048
     Dates: start: 20000101
  6. LEVOTHYROX [Concomitant]
     Indication: HYPOTHYROIDISM
     Route: 048
     Dates: start: 20000101
  7. NEXEN [Concomitant]
     Indication: PAIN
     Dosage: UNKNOWN
     Route: 048
     Dates: start: 20020101
  8. ELISOR [Concomitant]
     Indication: HYPERCHOLESTEROLAEMIA
     Dosage: 20 MG; FREQUENCY UNSPEC.
     Route: 048
     Dates: start: 19940101

REACTIONS (3)
  - DERMATITIS PSORIASIFORM [None]
  - LEUKOCYTOCLASTIC VASCULITIS [None]
  - PARONYCHIA [None]
